FAERS Safety Report 24631242 (Version 1)
Quarter: 2024Q4

REPORT INFORMATION
  Report Type: Spontaneous
  Country: US (occurrence: US)
  Receive Date: 20241118
  Receipt Date: 20241118
  Transmission Date: 20250114
  Serious: Yes (Hospitalization)
  Sender: MYLAN
  Company Number: US-MYLANLABS-2024M1102355

PATIENT
  Age: 15 Year
  Sex: Male

DRUGS (17)
  1. VANCOMYCIN [Suspect]
     Active Substance: VANCOMYCIN
     Indication: Evidence based treatment
     Dosage: 15 MILLIGRAM/KILOGRAM, Q8H
     Route: 065
  2. METHYLPREDNISOLONE [Suspect]
     Active Substance: METHYLPREDNISOLONE
     Indication: Drug reaction with eosinophilia and systemic symptoms
     Dosage: 1.5 MILLIGRAM/KILOGRAM, BID
     Route: 042
  3. METHYLPREDNISOLONE [Suspect]
     Active Substance: METHYLPREDNISOLONE
     Dosage: UNK, AFTER DRUG WAS TAPERED AND WITHDRAWAL, THE PATIENT DEVELOPED REBOUND AND ADR.
     Route: 042
  4. PREDNISONE [Suspect]
     Active Substance: PREDNISONE
     Indication: Drug reaction with eosinophilia and systemic symptoms
     Dosage: 60 MILLIGRAM, QD
     Route: 048
  5. PREDNISONE [Suspect]
     Active Substance: PREDNISONE
     Dosage: UNK, AFTER DRUG WAS TAPERED AND WITHDRAWAL, THE PATIENT DEVELOPED REBOUND AND ADR.
     Route: 048
  6. AMLODIPINE [Suspect]
     Active Substance: AMLODIPINE BESYLATE
     Indication: Hypertension
     Dosage: 2.5 MILLIGRAM, QD
     Route: 065
  7. AMOXICILLIN [Suspect]
     Active Substance: AMOXICILLIN
     Indication: Pneumonia bacterial
     Dosage: UNK
     Route: 065
  8. MYCOPHENOLATE MOFETIL [Suspect]
     Active Substance: MYCOPHENOLATE MOFETIL
     Indication: Acute kidney injury
     Dosage: UNK
     Route: 065
  9. MYCOPHENOLATE MOFETIL [Suspect]
     Active Substance: MYCOPHENOLATE MOFETIL
     Indication: Acute kidney injury
  10. MYCOPHENOLATE MOFETIL [Suspect]
     Active Substance: MYCOPHENOLATE MOFETIL
     Indication: Tubulointerstitial nephritis
  11. MINOCYCLINE [Suspect]
     Active Substance: MINOCYCLINE HYDROCHLORIDE
     Indication: Acne
     Dosage: UNK
     Route: 065
  12. CLINDAMYCIN [Suspect]
     Active Substance: CLINDAMYCIN
     Indication: Evidence based treatment
     Dosage: 10 MILLIGRAM/KILOGRAM, Q8H
     Route: 065
  13. ISRADIPINE [Suspect]
     Active Substance: ISRADIPINE
     Indication: Hypertension
     Dosage: UNK
     Route: 065
  14. CEFTRIAXONE [Suspect]
     Active Substance: CEFTRIAXONE
     Indication: Pneumonia bacterial
     Dosage: UNK
     Route: 065
  15. RASBURICASE [Suspect]
     Active Substance: RASBURICASE
     Indication: Acute kidney injury
     Dosage: UNK
     Route: 065
  16. RASBURICASE [Suspect]
     Active Substance: RASBURICASE
     Indication: Acute kidney injury
  17. RASBURICASE [Suspect]
     Active Substance: RASBURICASE
     Indication: Tubulointerstitial nephritis

REACTIONS (4)
  - Rebound effect [Recovering/Resolving]
  - Tubulointerstitial nephritis [Recovering/Resolving]
  - Acute kidney injury [Recovering/Resolving]
  - Drug-induced liver injury [Recovering/Resolving]
